FAERS Safety Report 8595724-9 (Version None)
Quarter: 2012Q3

REPORT INFORMATION
  Report Type: 
  Country: None (occurrence: None)
  Receive Date: 20120815
  Receipt Date: 20120808
  Transmission Date: 20120928
  Serious: Yes (Other)
  Sender: FDA-Public Use
  Company Number: US-ROCHE-1011727

PATIENT
  Sex: Male
  Weight: 101.2 kg

DRUGS (6)
  1. BACLOFEN [Concomitant]
     Route: 048
     Dates: start: 20081201
  2. BLINDED INX-189 (HCV POLYMERASE INHIBITOR) [Suspect]
     Indication: HEPATITIS C
     Route: 048
  3. AMBIEN [Concomitant]
     Route: 048
     Dates: start: 20081201
  4. LORAZEPAM [Concomitant]
     Route: 048
     Dates: start: 20081201
  5. PEGASYS [Suspect]
     Indication: HEPATITIS C
     Route: 058
  6. COPEGUS [Suspect]
     Indication: HEPATITIS C
     Route: 048

REACTIONS (1)
  - TRANSIENT ISCHAEMIC ATTACK [None]
